FAERS Safety Report 7150632-5 (Version None)
Quarter: 2010Q4

REPORT INFORMATION
  Report Type: 
  Country: None (occurrence: None)
  Receive Date: 20101210
  Receipt Date: 20101116
  Transmission Date: 20110411
  Serious: Yes (Hospitalization)
  Sender: FDA-Public Use
  Company Number: JP-AMGEN-QUU420063

PATIENT

DRUGS (7)
  1. ENBREL [Suspect]
     Indication: RHEUMATOID ARTHRITIS
     Dosage: 25 MG, QWK
     Route: 058
     Dates: start: 20100403, end: 20100607
  2. METHOTREXATE [Suspect]
     Dosage: 6 MG, QWK
     Route: 048
     Dates: end: 20100607
  3. ALFACALCIDOL [Concomitant]
     Dosage: 5 MG, QD
     Route: 048
  4. FOLIAMIN [Concomitant]
     Dosage: 5 MG, QWK
     Route: 048
     Dates: end: 20100607
  5. BUCILLAMINE [Concomitant]
     Dosage: 100 MG, QD
     Route: 048
     Dates: end: 20100703
  6. EPERISONE HYDROCHLORIDE [Concomitant]
  7. PREDNISOLONE [Concomitant]
     Dosage: 5 MG, QD
     Route: 048

REACTIONS (3)
  - DYSPNOEA EXERTIONAL [None]
  - ORGANISING PNEUMONIA [None]
  - PNEUMONIA [None]
